FAERS Safety Report 8364987-7 (Version None)
Quarter: 2012Q2

REPORT INFORMATION
  Report Type: 
  Country: None (occurrence: None)
  Receive Date: 20120516
  Receipt Date: 20120507
  Transmission Date: 20120825
  Serious: Yes (Hospitalization)
  Sender: FDA-Public Use
  Company Number: US-GLAXOSMITHKLINE-A0955253A

PATIENT
  Age: 16 Year
  Sex: Female
  Weight: 98.2 kg

DRUGS (7)
  1. ZYPREXA [Suspect]
     Indication: BIPOLAR DISORDER
     Dosage: 5MG AT NIGHT
     Route: 048
     Dates: start: 20110411, end: 20110729
  2. LORAZEPAM [Suspect]
     Indication: ANXIETY
     Route: 048
     Dates: start: 20110114
  3. LITHIUM CARBONATE [Suspect]
     Indication: BIPOLAR DISORDER
     Dosage: 600MG UNKNOWN
     Dates: start: 20101203, end: 20110301
  4. VITAMIN AND MINERAL PRENATAL SUPPLEMENT W/ FOLIC ACID CAP [Concomitant]
  5. LAMOTRIGINE [Suspect]
     Indication: BIPOLAR DISORDER
     Dosage: 300MG PER DAY
     Route: 048
     Dates: start: 20110114
  6. COLACE [Concomitant]
  7. GEODON [Suspect]
     Indication: BIPOLAR DISORDER
     Dosage: 120MG UNKNOWN
     Route: 048
     Dates: start: 20101116

REACTIONS (2)
  - MATERNAL EXPOSURE DURING PREGNANCY [None]
  - MENTAL DISORDER [None]
